FAERS Safety Report 9336902 (Version 2)
Quarter: 2013Q2

REPORT INFORMATION
  Report Type: Spontaneous
  Country: IT (occurrence: IT)
  Receive Date: 20130607
  Receipt Date: 20130628
  Transmission Date: 20140414
  Serious: Yes (Hospitalization)
  Sender: FDA-Public Use
  Company Number: IT-BRISTOL-MYERS SQUIBB COMPANY-18969410

PATIENT
  Age: 85 Year
  Sex: Female

DRUGS (10)
  1. COUMADIN TABS 5 MG [Suspect]
     Indication: ATRIAL FIBRILLATION
     Route: 048
     Dates: start: 20060412, end: 20130302
  2. URSODEOXYCHOLIC ACID [Concomitant]
     Route: 048
  3. LEVOSULPIRIDE [Concomitant]
     Route: 048
  4. LANOXIN [Concomitant]
     Dosage: 0.125 MG TAB
     Route: 048
  5. TAPAZOLE [Concomitant]
     Dosage: 5 MG TAB
     Route: 048
  6. LASITONE [Concomitant]
     Dosage: 25+37 MG CAPS
     Route: 048
  7. LASIX [Concomitant]
     Dosage: 25 MG TAB
     Route: 048
  8. CONGESCOR [Concomitant]
     Dosage: 1.25 MG TAB
     Route: 048
  9. ATARAX [Concomitant]
     Dosage: 25 MG TAB
     Route: 048
  10. PARIET [Concomitant]
     Dosage: 20 MG TAB
     Route: 048

REACTIONS (4)
  - Haematoma [Recovered/Resolved]
  - Erythema [Recovered/Resolved]
  - Petechiae [Recovered/Resolved]
  - Oedema peripheral [Recovered/Resolved]
